FAERS Safety Report 7765076-2 (Version None)
Quarter: 2011Q3

REPORT INFORMATION
  Report Type: 
  Country: None (occurrence: None)
  Receive Date: 20110919
  Receipt Date: 20110909
  Transmission Date: 20111222
  Serious: Yes (Hospitalization)
  Sender: FDA-Public Use
  Company Number: 2009SP042237

PATIENT
  Age: 42 Year
  Sex: Female
  Weight: 63.5036 kg

DRUGS (9)
  1. NUVARING [Suspect]
     Indication: DYSFUNCTIONAL UTERINE BLEEDING
     Dosage: ;QM;VAG
     Route: 067
     Dates: start: 20070912, end: 20080101
  2. NUVARING [Suspect]
     Indication: MENOMETRORRHAGIA
     Dosage: ;QM;VAG
     Route: 067
     Dates: start: 20070912, end: 20080101
  3. NUVARING [Suspect]
     Indication: DYSMENORRHOEA
     Dosage: ;QM;VAG
     Route: 067
     Dates: start: 20070912, end: 20080101
  4. ASCORBIC ACID [Concomitant]
  5. MULTI-VITAMINS [Concomitant]
  6. SLOW FE  EPAM [Concomitant]
  7. CLARITIN [Concomitant]
  8. LORAZEPAM [Concomitant]
  9. PROTONIX [Concomitant]

REACTIONS (10)
  - DEEP VEIN THROMBOSIS [None]
  - SARCOIDOSIS [None]
  - BACK PAIN [None]
  - CONSTIPATION [None]
  - LYMPHADENOPATHY MEDIASTINAL [None]
  - VAGINITIS BACTERIAL [None]
  - HAEMATURIA [None]
  - EMBOLISM ARTERIAL [None]
  - MENORRHAGIA [None]
  - THROMBOSIS [None]
